FAERS Safety Report 7463938-7 (Version None)
Quarter: 2011Q2

REPORT INFORMATION
  Report Type: 
  Country: None (occurrence: None)
  Receive Date: 20110506
  Receipt Date: 20110429
  Transmission Date: 20111010
  Serious: Yes (Hospitalization)
  Sender: FDA-Public Use
  Company Number: AU-WATSON-2011-05918

PATIENT
  Sex: Female

DRUGS (2)
  1. EXEMESTANE [Suspect]
     Indication: BREAST CANCER FEMALE
     Dosage: 25 MG, DAILY
     Route: 048
     Dates: start: 20060525
  2. TRELSTAR [Suspect]
     Indication: BREAST CANCER FEMALE
     Dosage: ONCE EVERY 28 DAYS
     Route: 030
     Dates: start: 20060525

REACTIONS (1)
  - MIGRAINE [None]
